FAERS Safety Report 13344055 (Version 1)
Quarter: 2017Q1

REPORT INFORMATION
  Report Type: Spontaneous
  Country: AU (occurrence: AU)
  Receive Date: 20170316
  Receipt Date: 20170316
  Transmission Date: 20170428
  Serious: Yes (Other)
  Sender: FDA-Public Use
  Company Number: AU-009507513-1609AUS010909

PATIENT
  Sex: Female

DRUGS (1)
  1. BRIDION [Suspect]
     Active Substance: SUGAMMADEX
     Dosage: UNK

REACTIONS (4)
  - Flushing [Unknown]
  - Swelling face [Unknown]
  - Anaphylactic reaction [Unknown]
  - Rash [Unknown]

NARRATIVE: CASE EVENT DATE: 20160901
